FAERS Safety Report 26140581 (Version 1)
Quarter: 2025Q4

REPORT INFORMATION
  Report Type: Spontaneous
  Country: US (occurrence: US)
  Receive Date: 20251210
  Receipt Date: 20251210
  Transmission Date: 20260118
  Serious: No
  Sender: SANOFI AVENTIS
  Company Number: US-SANOFI-02743584

PATIENT
  Age: 83 Year
  Sex: Male

DRUGS (1)
  1. LANTUS SOLOSTAR [Suspect]
     Active Substance: INSULIN GLARGINE
     Indication: Type 2 diabetes mellitus
     Dosage: 15 IU, BID
     Route: 065

REACTIONS (4)
  - Blood glucose increased [Recovering/Resolving]
  - Drug ineffective [Unknown]
  - Off label use [Unknown]
  - Product dispensing error [Unknown]
